FAERS Safety Report 5089863-7 (Version None)
Quarter: 2006Q3

REPORT INFORMATION
  Report Type: 
  Country: None (occurrence: None)
  Receive Date: 20060823
  Receipt Date: 20060807
  Transmission Date: 20061208
  Serious: Yes (Hospitalization)
  Sender: FDA-Public Use
  Company Number: PHRM2006FR02275

PATIENT
  Age: 58 Year
  Sex: Female
  Weight: 83 kg

DRUGS (8)
  1. ZOMETA [Suspect]
     Indication: METASTASES TO BONE
     Dosage: UNK, UNK
     Route: 042
     Dates: start: 20060601, end: 20060601
  2. FASLODEX [Suspect]
     Indication: BREAST CANCER METASTATIC
     Route: 042
     Dates: start: 20060601, end: 20060601
  3. MITOMYCIN [Suspect]
     Indication: BREAST CANCER METASTATIC
     Route: 042
     Dates: start: 20060307, end: 20060518
  4. NAVELBINE [Suspect]
     Indication: BREAST CANCER METASTATIC
     Route: 042
     Dates: start: 20060307, end: 20060518
  5. CALCIUM FOLINATE [Suspect]
     Indication: BREAST CANCER METASTATIC
     Route: 042
     Dates: start: 20060307, end: 20060518
  6. FLUOROURACIL [Suspect]
     Indication: BREAST CANCER METASTATIC
     Route: 042
     Dates: start: 20060307, end: 20060518
  7. ZOPHREN [Suspect]
     Indication: BREAST CANCER METASTATIC
     Dates: start: 20060307, end: 20060518
  8. GRANOCYTE [Suspect]
     Indication: BREAST CANCER METASTATIC
     Dates: start: 20060307, end: 20060518

REACTIONS (8)
  - ABDOMINAL PAIN [None]
  - CUTANEOUS VASCULITIS [None]
  - ILEITIS [None]
  - NEPHROTIC SYNDROME [None]
  - PROTEINURIA [None]
  - PYREXIA [None]
  - RENAL VASCULITIS [None]
  - VASCULAR PURPURA [None]
